FAERS Safety Report 10871767 (Version 1)
Quarter: 2015Q1

REPORT INFORMATION
  Report Type: Spontaneous
  Country: US (occurrence: US)
  Receive Date: 20150226
  Receipt Date: 20150226
  Transmission Date: 20150721
  Serious: No
  Sender: FDA-Public Use
  Company Number: US-BAYER-2015-028837

PATIENT
  Age: 32 Year
  Sex: Male
  Weight: 93.88 kg

DRUGS (1)
  1. ALEVE [Suspect]
     Active Substance: NAPROXEN SODIUM
     Indication: ANALGESIC THERAPY
     Dosage: 2 DF, QD
     Route: 048
     Dates: start: 20150222, end: 20150223

REACTIONS (2)
  - Drug ineffective [None]
  - Drug ineffective [None]

NARRATIVE: CASE EVENT DATE: 20150222
